FAERS Safety Report 11509253 (Version 1)
Quarter: 2015Q3

REPORT INFORMATION
  Report Type: Spontaneous
  Country: US (occurrence: US)
  Receive Date: 20150915
  Receipt Date: 20150915
  Transmission Date: 20151125
  Serious: Yes (Hospitalization, Other)
  Sender: FDA-Public Use
  Company Number: US-PFIZER INC-2015303731

PATIENT
  Age: 60 Year
  Sex: Female

DRUGS (10)
  1. DEMEROL [Suspect]
     Active Substance: MEPERIDINE HYDROCHLORIDE
     Indication: ANKLE FRACTURE
     Dosage: UNK
     Dates: start: 2013
  2. VALACYCLOVIR [Suspect]
     Active Substance: VALACYCLOVIR HYDROCHLORIDE
     Indication: HERPES ZOSTER
     Dosage: UNK
     Dates: start: 20150817
  3. FAMOTIDINE. [Concomitant]
     Active Substance: FAMOTIDINE
     Dosage: UNK
  4. IPRATROPIUM NEBULIZER [Concomitant]
     Dosage: UNK
  5. AROMASIN [Suspect]
     Active Substance: EXEMESTANE
     Indication: BREAST CANCER
     Dosage: UNK
  6. ZOFRAN [Suspect]
     Active Substance: ONDANSETRON HYDROCHLORIDE
     Indication: NAUSEA
     Dosage: UNK
     Dates: start: 201507
  7. IBUPROFEN. [Concomitant]
     Active Substance: IBUPROFEN
     Dosage: UNK
  8. ADVAIR DISKUS [Suspect]
     Active Substance: FLUTICASONE PROPIONATE\SALMETEROL XINAFOATE
     Indication: ASTHMA
     Dosage: 250/50 MCG 1 PUFF TWICE DAILY
     Route: 045
     Dates: start: 2006
  9. VENTOLIN HFA [Suspect]
     Active Substance: ALBUTEROL SULFATE
     Indication: ASTHMA
     Dosage: 1 DF (1 PUFF), AS NEEDED
  10. LEVOTHYROXINE. [Concomitant]
     Active Substance: LEVOTHYROXINE
     Dosage: UNK

REACTIONS (15)
  - Cardiac pacemaker insertion [Unknown]
  - Ankle fracture [Recovered/Resolved]
  - Chest pain [Recovered/Resolved]
  - Pain [Recovered/Resolved]
  - Vomiting [Recovered/Resolved]
  - Nausea [Recovered/Resolved]
  - Chronic obstructive pulmonary disease [Unknown]
  - Cardiac pacemaker replacement [Unknown]
  - Cough [Not Recovered/Not Resolved]
  - Herpes zoster [Not Recovered/Not Resolved]
  - Urticaria [Recovered/Resolved]
  - Disease progression [Recovering/Resolving]
  - Breast cancer [Recovering/Resolving]
  - Inflammation [Recovered/Resolved]
  - Dyspnoea [Not Recovered/Not Resolved]

NARRATIVE: CASE EVENT DATE: 2003
